FAERS Safety Report 18304070 (Version 3)
Quarter: 2021Q3

REPORT INFORMATION
  Report Type: Spontaneous
  Country: HU (occurrence: HU)
  Receive Date: 20200923
  Receipt Date: 20210921
  Transmission Date: 20211014
  Serious: Yes (Other)
  Sender: FDA-Public Use
  Company Number: HU-MYLANLABS-2020M1081159

PATIENT
  Age: 30 Year
  Sex: Male
  Weight: 93 kg

DRUGS (12)
  1. TRAMADOL. [Suspect]
     Active Substance: TRAMADOL
     Indication: PRODUCT USED FOR UNKNOWN INDICATION
     Dosage: QD
     Route: 065
  2. METHOTREXATE. [Suspect]
     Active Substance: METHOTREXATE
     Dosage: 10 MG, QW
     Route: 065
     Dates: start: 2019, end: 2020
  3. DICLOFENAC SODIUM W/ORPHENADRINE [Concomitant]
     Active Substance: DICLOFENAC\ORPHENADRINE
     Indication: ANALGESIC THERAPY
     Dosage: 5 TIMES, 5X
     Route: 065
  4. NIMESULIDE [Concomitant]
     Active Substance: NIMESULIDE
     Indication: PRODUCT USED FOR UNKNOWN INDICATION
     Dosage: 200 MILLIGRAM, QD
     Route: 065
  5. CERTOLIZUMAB PEGOL [Concomitant]
     Active Substance: CERTOLIZUMAB PEGOL
     Indication: PRODUCT USED FOR UNKNOWN INDICATION
     Dosage: UNK
     Route: 065
     Dates: start: 20190226
  6. DICLOFENAC [Suspect]
     Active Substance: DICLOFENAC
     Indication: PRODUCT USED FOR UNKNOWN INDICATION
     Dosage: 150 MILLIGRAM, QD
     Route: 065
  7. METHOTREXATE. [Suspect]
     Active Substance: METHOTREXATE
     Indication: PSORIASIS
     Dosage: 15 MILLIGRAM, QW
     Route: 065
     Dates: start: 2020
  8. SECUKINUMAB. [Suspect]
     Active Substance: SECUKINUMAB
     Dosage: 150 MILLIGRAM, MONTHLY
     Route: 058
     Dates: end: 2020
  9. SECUKINUMAB. [Suspect]
     Active Substance: SECUKINUMAB
     Indication: PSORIATIC ARTHROPATHY
     Dosage: 300 MILLIGRAM, MONTHLY
     Route: 065
     Dates: start: 2020
  10. METHOTREXATE. [Suspect]
     Active Substance: METHOTREXATE
     Dosage: 17.5 MG,. QW
     Route: 065
     Dates: start: 2020
  11. SECUKINUMAB. [Suspect]
     Active Substance: SECUKINUMAB
     Indication: PSORIATIC ARTHROPATHY
     Dosage: 150 MILLIGRAM, QW
     Route: 058
     Dates: start: 201911, end: 201912
  12. ETORICOXIB. [Suspect]
     Active Substance: ETORICOXIB
     Indication: PRODUCT USED FOR UNKNOWN INDICATION
     Dosage: 90 MILLIGRAM, QD
     Route: 065

REACTIONS (20)
  - Psoriatic arthropathy [Unknown]
  - Spinal pain [Recovered/Resolved]
  - Condition aggravated [Unknown]
  - Neck pain [Unknown]
  - Enthesopathy [Recovered/Resolved]
  - Ligament calcification [Unknown]
  - Sacroiliitis [Unknown]
  - Skin lesion [Unknown]
  - Ankylosing spondylitis [Unknown]
  - Bell^s palsy [Unknown]
  - C-reactive protein abnormal [Unknown]
  - Arthralgia [Unknown]
  - Body mass index abnormal [Unknown]
  - Hypercholesterolaemia [Unknown]
  - Skin exfoliation [Recovering/Resolving]
  - Palmoplantar pustulosis [Unknown]
  - Drug ineffective [Unknown]
  - Dactylitis [Recovered/Resolved]
  - Red blood cell sedimentation rate decreased [Unknown]
  - Back pain [Recovering/Resolving]

NARRATIVE: CASE EVENT DATE: 2008
